FAERS Safety Report 22631533 (Version 2)
Quarter: 2023Q2

REPORT INFORMATION
  Report Type: Report from Study
  Country: US (occurrence: US)
  Receive Date: 20230623
  Receipt Date: 20230623
  Transmission Date: 20230721
  Serious: No
  Sender: FDA-Public Use
  Company Number: US-002147023-NVSC2023US140290

PATIENT
  Sex: Male

DRUGS (1)
  1. COSENTYX [Suspect]
     Active Substance: SECUKINUMAB
     Indication: Psoriasis
     Dosage: UNK
     Route: 065

REACTIONS (9)
  - Device difficult to use [Unknown]
  - Night sweats [Unknown]
  - Injection site pain [Unknown]
  - Disorientation [Unknown]
  - Nervousness [Unknown]
  - Feeling abnormal [Unknown]
  - Dizziness [Unknown]
  - Enuresis [Unknown]
  - Blood glucose abnormal [Unknown]
